FAERS Safety Report 21881001 (Version 1)
Quarter: 2023Q1

REPORT INFORMATION
  Report Type: Report from Study
  Country: RO (occurrence: RO)
  Receive Date: 20230118
  Receipt Date: 20230118
  Transmission Date: 20230417
  Serious: Yes (Hospitalization)
  Sender: FDA-Public Use
  Company Number: RO-ABBVIE-4274018

PATIENT
  Age: 37 Year
  Sex: Male

DRUGS (2)
  1. GLECAPREVIR\PIBRENTASVIR [Suspect]
     Active Substance: GLECAPREVIR\PIBRENTASVIR
     Indication: Chronic hepatitis C
     Dosage: 300 MG/120 MG
     Route: 048
     Dates: start: 20220729, end: 20220916
  2. Ketonal [Concomitant]
     Indication: Renal pain
     Dosage: 1 TABLET?FREQUENCY TEXT: WHEN NEEDED
     Route: 048

REACTIONS (6)
  - Leg amputation [Recovering/Resolving]
  - Nephropathy [Recovering/Resolving]
  - Nephropathy [Recovering/Resolving]
  - Dysuria [Recovering/Resolving]
  - Pain in extremity [Recovering/Resolving]
  - Bone disorder [Recovering/Resolving]

NARRATIVE: CASE EVENT DATE: 20221101
